FAERS Safety Report 8492265-4 (Version None)
Quarter: 2012Q3

REPORT INFORMATION
  Report Type: 
  Country: None (occurrence: None)
  Receive Date: 20120706
  Receipt Date: 20120702
  Transmission Date: 20120928
  Serious: Yes (Other)
  Sender: FDA-Public Use
  Company Number: AU-ROCHE-1084786

PATIENT
  Sex: Male

DRUGS (8)
  1. PERINDOPRIL ERBUMINE [Concomitant]
  2. PLAQUENIL [Concomitant]
  3. ATENOLOL [Concomitant]
  4. NEXIUM [Concomitant]
  5. CLOPIDOGREL BISULFATE [Concomitant]
  6. ACTEMRA [Suspect]
     Indication: RHEUMATOID ARTHRITIS
     Dosage: 31.2 ML
     Dates: start: 20101115
  7. LIPITOR [Concomitant]
  8. TRAMADOL HYDROCHLORIDE [Concomitant]
     Dosage: 50-100 MG PRN

REACTIONS (1)
  - EMPHYSEMA [None]
